FAERS Safety Report 5438451-9 (Version None)
Quarter: 2007Q3

REPORT INFORMATION
  Report Type: 
  Country: None (occurrence: None)
  Receive Date: 20070831
  Receipt Date: 20070821
  Transmission Date: 20080115
  Serious: Yes (Hospitalization, Other)
  Sender: FDA-Public Use
  Company Number: US-ELI_LILLY_AND_COMPANY-US200708004506

PATIENT
  Age: 73 Year
  Sex: Female

DRUGS (7)
  1. FORTEO [Suspect]
     Dates: start: 20070723, end: 20070805
  2. FORTEO [Suspect]
     Dates: start: 20070810
  3. LOVASTATIN [Concomitant]
     Indication: BLOOD CHOLESTEROL INCREASED
     Dosage: 20 MG, UNK
  4. ATENOLOL [Concomitant]
     Indication: HYPERTENSION
     Dosage: 100 MG, UNK
  5. HYDROCHLOROTHIAZIDE [Concomitant]
     Indication: HYPERTENSION
     Dosage: 25 MG, DAILY (1/D)
  6. MULTIVITAMIN [Concomitant]
  7. CALCIUM W/VITAMIN D NOS [Concomitant]

REACTIONS (10)
  - CONSTIPATION [None]
  - DYSPEPSIA [None]
  - FAECES HARD [None]
  - FALL [None]
  - HIP FRACTURE [None]
  - IRON DEFICIENCY [None]
  - MEMORY IMPAIRMENT [None]
  - MUSCLE SPASMS [None]
  - NAUSEA [None]
  - PROCEDURAL PAIN [None]
